FAERS Safety Report 5496582-1 (Version None)
Quarter: 2007Q4

REPORT INFORMATION
  Report Type: 
  Country: None (occurrence: None)
  Receive Date: 20071025
  Receipt Date: 20070831
  Transmission Date: 20080405
  Serious: No
  Sender: FDA-Public Use
  Company Number: A0659199A

PATIENT
  Age: 69 Year
  Sex: Female

DRUGS (9)
  1. ADVAIR DISKUS 100/50 [Suspect]
     Indication: CHRONIC OBSTRUCTIVE PULMONARY DISEASE
     Route: 055
     Dates: start: 20070401
  2. DIOVAN [Concomitant]
  3. FAMOTIDINE [Concomitant]
  4. ALCON [Concomitant]
  5. ZETIA [Concomitant]
  6. COREG [Concomitant]
  7. PLAVIX [Concomitant]
  8. ISOSORBIDE DINITRATE [Concomitant]
  9. GLIPIZIDE [Concomitant]

REACTIONS (3)
  - BRONCHITIS [None]
  - COUGH [None]
  - PHARMACEUTICAL PRODUCT COMPLAINT [None]
